FAERS Safety Report 10900998 (Version 1)
Quarter: 2015Q1

REPORT INFORMATION
  Report Type: Spontaneous
  Country: US (occurrence: None)
  Receive Date: 20150303
  Receipt Date: 20150303
  Transmission Date: 20150721
  Serious: Yes (Other)
  Sender: FDA-Public Use
  Company Number: 2759161

PATIENT
  Age: 67 Year
  Sex: Female
  Weight: 95 kg

DRUGS (1)
  1. 4% LIDOCAINE HCL TOPICAL SOLN, USP, (LTAO 360 KITY AND LTAO II KIT) (LIDOCAINE HYDROCHLORIDE) [Suspect]
     Active Substance: LIDOCAINE HYDROCHLORIDE
     Indication: ENDOTRACHEAL INTUBATION
     Dosage: NOT REPORTED, ONCE, UNKNOWN, TOPICAL
     Route: 061
     Dates: start: 20140805, end: 20140805

REACTIONS (2)
  - Device breakage [None]
  - Foreign body [None]

NARRATIVE: CASE EVENT DATE: 20140805
